FAERS Safety Report 8596238-2 (Version None)
Quarter: 2012Q3

REPORT INFORMATION
  Report Type: 
  Country: None (occurrence: None)
  Receive Date: 20120815
  Receipt Date: 20120808
  Transmission Date: 20120928
  Serious: Yes (Death, Hospitalization)
  Sender: FDA-Public Use
  Company Number: US-CELGENEUS-163-21880-12072696

PATIENT
  Age: 79 Year
  Sex: Male
  Weight: 75.11 kg

DRUGS (16)
  1. MELPHALAN HYDROCHLORIDE [Suspect]
     Dosage: 5 MILLIGRAM/SQ. METER
     Route: 048
     Dates: start: 20110302, end: 20110305
  2. MELPHALAN HYDROCHLORIDE [Suspect]
     Indication: MULTIPLE MYELOMA
     Dosage: 5 MILLIGRAM/SQ. METER
     Route: 048
     Dates: start: 20100414
  3. PREDNISONE TAB [Suspect]
     Indication: MULTIPLE MYELOMA
     Dosage: 100 MILLIGRAM
     Route: 048
     Dates: start: 20110414
  4. VELCADE [Concomitant]
     Indication: SALVAGE THERAPY
     Dates: start: 20111110, end: 20120116
  5. CYTOXAN [Concomitant]
     Route: 065
     Dates: start: 20120307
  6. REVLIMID [Suspect]
     Dosage: 10 MILLIGRAM
     Route: 048
     Dates: start: 20110302, end: 20110322
  7. PREDNISONE TAB [Suspect]
     Dosage: 100 MILLIGRAM
     Route: 048
     Dates: start: 20110302, end: 20110305
  8. ASPIRIN [Concomitant]
     Dosage: 325 MILLIGRAM
     Route: 048
     Dates: start: 20100414
  9. NEUPOGEN [Concomitant]
     Indication: PROPHYLAXIS
     Route: 065
  10. ANTIBIOTICS [Concomitant]
     Indication: PROPHYLAXIS
     Route: 065
  11. ADRIAMYCIN PFS [Concomitant]
     Route: 065
     Dates: start: 20120307
  12. ZOMETA [Concomitant]
     Route: 065
  13. REVLIMID [Suspect]
     Indication: MULTIPLE MYELOMA
     Dosage: 10 MILLIGRAM
     Route: 048
     Dates: start: 20100414
  14. VINCRISTINE [Concomitant]
     Route: 065
     Dates: start: 20120307
  15. PREDNISONE TAB [Suspect]
     Route: 065
     Dates: start: 20120307
  16. RBCS [Concomitant]
     Dosage: 3 UNITS
     Route: 041
     Dates: start: 20120305

REACTIONS (1)
  - PERIPHERAL T-CELL LYMPHOMA UNSPECIFIED [None]
